FAERS Safety Report 7471078-6 (Version None)
Quarter: 2011Q2

REPORT INFORMATION
  Report Type: 
  Country: None (occurrence: None)
  Receive Date: 20110506
  Receipt Date: 20110506
  Transmission Date: 20111010
  Serious: Yes (Other)
  Sender: FDA-Public Use
  Company Number: None

PATIENT
  Age: 77 Year
  Sex: Male
  Weight: 74.8435 kg

DRUGS (1)
  1. JANUMET [Suspect]
     Indication: TYPE 2 DIABETES MELLITUS
     Dosage: 2 TABLETS DAILY
     Dates: start: 20110209, end: 20110217

REACTIONS (4)
  - FEELING JITTERY [None]
  - RHINORRHOEA [None]
  - DYSPNOEA [None]
  - HEART RATE IRREGULAR [None]
